FAERS Safety Report 6868752-9 (Version None)
Quarter: 2010Q3

REPORT INFORMATION
  Report Type: 
  Country: None (occurrence: None)
  Receive Date: 20100722
  Receipt Date: 20080612
  Transmission Date: 20110219
  Serious: No
  Sender: FDA-Public Use
  Company Number: US-PFIZER INC-2008050151

PATIENT
  Sex: Male
  Weight: 83.2 kg

DRUGS (3)
  1. CHANTIX [Suspect]
     Indication: SMOKING CESSATION THERAPY
     Dates: start: 20080606
  2. TYLOX [Concomitant]
  3. ACYCLOVIR [Concomitant]

REACTIONS (2)
  - INFLUENZA LIKE ILLNESS [None]
  - NAUSEA [None]
